FAERS Safety Report 7918963-6 (Version None)
Quarter: 2011Q4

REPORT INFORMATION
  Report Type: 
  Country: None (occurrence: None)
  Receive Date: 20111116
  Receipt Date: 20111111
  Transmission Date: 20120403
  Serious: Yes (Life-Threatening, Hospitalization)
  Sender: FDA-Public Use
  Company Number: US-ASTRAZENECA-2011SE67767

PATIENT
  Age: 51 Year
  Sex: Female

DRUGS (2)
  1. SEROQUEL [Suspect]
     Route: 048
  2. SEROQUEL [Suspect]
     Indication: SLEEP DISORDER
     Route: 048

REACTIONS (6)
  - ABASIA [None]
  - CARDIAC FAILURE CONGESTIVE [None]
  - OXYGEN SATURATION DECREASED [None]
  - ACUTE RESPIRATORY FAILURE [None]
  - PNEUMONIA [None]
  - SPEECH DISORDER [None]
